FAERS Safety Report 17012874 (Version 5)
Quarter: 2020Q2

REPORT INFORMATION
  Report Type: Spontaneous
  Country: JP (occurrence: JP)
  Receive Date: 20191109
  Receipt Date: 20200520
  Transmission Date: 20200713
  Serious: Yes (Hospitalization, Other)
  Sender: FDA-Public Use
  Company Number: JP-MALLINCKRODT-T201907328

PATIENT
  Sex: Male

DRUGS (4)
  1. COLCHICINE. [Concomitant]
     Active Substance: COLCHICINE
     Indication: PRODUCT USED FOR UNKNOWN INDICATION
     Dosage: UNK
     Route: 048
  2. LOXONIN [Concomitant]
     Active Substance: LOXOPROFEN SODIUM
     Indication: HEADACHE
     Dosage: UNK
     Route: 065
     Dates: end: 201910
  3. AMITIZA [Suspect]
     Active Substance: LUBIPROSTONE
     Indication: PRODUCT USED FOR UNKNOWN INDICATION
     Dosage: UNK
     Route: 048
     Dates: end: 201910
  4. LOSARTAN POTASSIUM. [Concomitant]
     Active Substance: LOSARTAN POTASSIUM
     Indication: PRODUCT USED FOR UNKNOWN INDICATION
     Dosage: UNK
     Route: 048

REACTIONS (22)
  - Anuria [Unknown]
  - Rhabdomyolysis [Unknown]
  - Angioedema [Unknown]
  - Gingival bleeding [Unknown]
  - Oropharyngeal pain [Unknown]
  - Abdominal pain upper [Unknown]
  - Rash [Unknown]
  - Pyrexia [Unknown]
  - Blood pressure decreased [Unknown]
  - Liver function test decreased [Unknown]
  - Breath sounds abnormal [Unknown]
  - Cough [Unknown]
  - Blood triglycerides increased [Unknown]
  - Erythema [Recovering/Resolving]
  - Chest discomfort [Unknown]
  - Drug ineffective [Unknown]
  - Infection [Unknown]
  - Dry skin [Recovering/Resolving]
  - Dry mouth [Unknown]
  - Flatulence [Unknown]
  - Hypersensitivity [Unknown]
  - Blood cholesterol increased [Unknown]
